FAERS Safety Report 4385660-6 (Version None)
Quarter: 2004Q2

REPORT INFORMATION
  Report Type: 
  Country: None (occurrence: None)
  Receive Date: 20040624
  Receipt Date: 20040611
  Transmission Date: 20050107
  Serious: Yes (Hospitalization)
  Sender: FDA-Public Use
  Company Number: 2004UW12204

PATIENT
  Age: 76 Year
  Sex: Male

DRUGS (8)
  1. CRESTOR [Suspect]
     Dosage: 10 MG QD PO
     Route: 048
  2. CELEBREX [Concomitant]
  3. NEMENDA [Concomitant]
  4. REMINYL [Concomitant]
  5. ZOLOFT [Concomitant]
  6. TRICOR [Concomitant]
  7. VISTARIL [Concomitant]
  8. GEODON [Concomitant]

REACTIONS (2)
  - RHABDOMYOLYSIS [None]
  - URINARY TRACT INFECTION [None]
